FAERS Safety Report 9002631 (Version 1)
Quarter: 2013Q1

REPORT INFORMATION
  Report Type: Spontaneous
  Country: US (occurrence: US)
  Receive Date: 20130107
  Receipt Date: 20130107
  Transmission Date: 20140127
  Serious: Yes (Hospitalization, Other)
  Sender: FDA-Public Use
  Company Number: US-OTSUKA-US-2012-11853

PATIENT
  Sex: Female

DRUGS (1)
  1. SAMSCA [Suspect]
     Indication: BLOOD SODIUM DECREASED
     Dosage: 15 MG MILLIGRAM(S), EVERY OTHER DAY

REACTIONS (6)
  - Gastric cancer [Unknown]
  - Abdominal pain upper [None]
  - Back pain [None]
  - Blood sodium decreased [None]
  - Headache [None]
  - Hypokalaemia [None]
